FAERS Safety Report 8374532-8 (Version None)
Quarter: 2012Q2

REPORT INFORMATION
  Report Type: 
  Country: None (occurrence: None)
  Receive Date: 20120521
  Receipt Date: 20120509
  Transmission Date: 20120825
  Serious: No
  Sender: FDA-Public Use
  Company Number: US-ASTRAZENECA-2011SE16989

PATIENT
  Age: 50 Year
  Sex: Female
  Weight: 84.4 kg

DRUGS (11)
  1. SEROQUEL [Suspect]
     Indication: SLEEP DISORDER
     Route: 048
     Dates: start: 20030101
  2. SEROQUEL [Suspect]
     Indication: BIPOLAR DISORDER
     Route: 048
     Dates: start: 20030101
  3. SEROQUEL [Suspect]
     Indication: MOOD SWINGS
     Route: 048
     Dates: start: 20030101
  4. SEROQUEL [Suspect]
     Route: 048
  5. AMBIEN [Concomitant]
     Indication: SLEEP DISORDER
  6. SEROQUEL [Suspect]
     Indication: POST-TRAUMATIC STRESS DISORDER
     Route: 048
     Dates: start: 20030101
  7. SEROQUEL [Suspect]
     Route: 048
  8. SEROQUEL [Suspect]
     Route: 048
  9. SEROQUEL [Suspect]
     Route: 048
  10. GEODON [Concomitant]
  11. LAMICTAL [Concomitant]
     Indication: MOOD SWINGS

REACTIONS (5)
  - WEIGHT INCREASED [None]
  - VISUAL ACUITY REDUCED [None]
  - INTENTIONAL DRUG MISUSE [None]
  - ABDOMINAL PAIN UPPER [None]
  - INSOMNIA [None]
